FAERS Safety Report 17004397 (Version 1)
Quarter: 2019Q4

REPORT INFORMATION
  Report Type: Spontaneous
  Country: GB (occurrence: GB)
  Receive Date: 20191107
  Receipt Date: 20191107
  Transmission Date: 20200122
  Serious: Yes (Other)
  Sender: FDA-Public Use
  Company Number: GB-PFIZER INC-2019477422

PATIENT
  Age: 69 Year
  Sex: Male
  Weight: 92 kg

DRUGS (3)
  1. SILDENAFIL CITRATE. [Suspect]
     Active Substance: SILDENAFIL CITRATE
     Dosage: 100 MG, USE AS DIRECTED
     Dates: start: 20180717
  2. SIMVASTATIN. [Concomitant]
     Active Substance: SIMVASTATIN
     Dosage: 1 DF, DAILY, NIGHT
     Dates: start: 20170224
  3. LANSOPRAZOLE. [Concomitant]
     Active Substance: LANSOPRAZOLE
     Dosage: 1 DF, DAILY
     Dates: start: 20160406

REACTIONS (2)
  - Penile curvature [Unknown]
  - Priapism [Not Recovered/Not Resolved]

NARRATIVE: CASE EVENT DATE: 20191011
